FAERS Safety Report 16597391 (Version 3)
Quarter: 2019Q3

REPORT INFORMATION
  Report Type: Spontaneous
  Country: US (occurrence: US)
  Receive Date: 20190719
  Receipt Date: 20190829
  Transmission Date: 20191004
  Serious: No
  Sender: FDA-Public Use
  Company Number: US-PFIZER INC-2019303843

PATIENT
  Age: 85 Year
  Sex: Female
  Weight: 73.3 kg

DRUGS (17)
  1. CLONIDINE HCL [Concomitant]
     Active Substance: CLONIDINE HYDROCHLORIDE
     Dosage: 0.1 MG, DAILY
     Route: 048
  2. PANTOPRAZOLE SODIUM. [Concomitant]
     Active Substance: PANTOPRAZOLE SODIUM
     Dosage: 40 MG, DAILY (ONE ORALLY DAILY 1/2 HR. BEFORE FOOD)
     Route: 048
  3. ISOSORBIDE MONONITRATE. [Concomitant]
     Active Substance: ISOSORBIDE MONONITRATE
     Dosage: 30 MG, 1X/DAY
     Route: 048
     Dates: start: 20150204
  4. ATORVASTATIN CALCIUM. [Concomitant]
     Active Substance: ATORVASTATIN CALCIUM
     Dosage: 40 MG, 1X/DAY (SIG: ONE PO (ORALLY) DAILY)
     Route: 048
  5. POTASSIUM CHLORIDE. [Concomitant]
     Active Substance: POTASSIUM CHLORIDE
     Dosage: 10 MEQ, DAILY
     Route: 048
  6. SPIRIVA RESPIMAT [Concomitant]
     Active Substance: TIOTROPIUM BROMIDE
     Dosage: 5 UG, DAILY (SIG: INHALE 2 PUFFS (5 MCG) BY MOUTH DAILY)
     Route: 048
     Dates: start: 20170731
  7. VALSARTAN AND HYDROCHLOROTHIAZIDE [Concomitant]
     Active Substance: HYDROCHLOROTHIAZIDE\VALSARTAN
     Dosage: 1 DF, DAILY(160-12.5 MG ORAL TABLET SIG: 1 TABLET ORALLY DAILY)
     Route: 048
  8. PROAIR HFA [Concomitant]
     Active Substance: ALBUTEROL SULFATE
     Dosage: 2 DF, AS NEEDED (2 PUFFS EVERY 4-6 HR. PRN (AS NEEDED))
  9. ASPIRIN (E.C.) [Concomitant]
     Active Substance: ASPIRIN
     Dosage: 81 MG, DAILY (SIG: ONE DAILY)
     Route: 048
  10. VITAMIN D [COLECALCIFEROL] [Concomitant]
     Active Substance: CHOLECALCIFEROL
     Dosage: 1000 IU, ALTERNATE DAY ((SIG: ONE EVERY OTHER DAY))
     Route: 048
  11. BREO ELLIPTA [Concomitant]
     Active Substance: FLUTICASONE FUROATE\VILANTEROL TRIFENATATE
     Dosage: UNK (SIG: ONE INH DAILY AT PM DOES THROUGH PATIENT ASSISTANCE)
     Route: 055
  12. LEVOTHYROXINE SODIUM. [Concomitant]
     Active Substance: LEVOTHYROXINE SODIUM
     Dosage: 50 UG, DAILY
     Route: 048
  13. PROLIA [Concomitant]
     Active Substance: DENOSUMAB
     Dosage: 60 MG, UNK (SIG: 60 MG SUBQ EVERY 6 MONTHS (JAN-JUL))
     Route: 058
     Dates: start: 20120601
  14. DOCUSATE SODIUM. [Concomitant]
     Active Substance: DOCUSATE SODIUM
     Indication: FAECES HARD
     Dosage: 100 MG, AS NEEDED (SIG: ONE DAILY AND PRN (AS NEEDED))
     Route: 048
  15. TOVIAZ [Suspect]
     Active Substance: FESOTERODINE FUMARATE
     Indication: URINARY INCONTINENCE
     Dosage: 4 MG, 2X/DAY (ONE IN THE MORNING AND ONE AT NIGHT)/(ONE ORALLY TWICE A DAY AT PM )
     Route: 048
     Dates: start: 20170518
  16. METOPROLOL SUCCINATE. [Concomitant]
     Active Substance: METOPROLOL SUCCINATE
     Dosage: 25 MG, 2X/DAY
     Route: 048
  17. SERTRALINE HCL [Concomitant]
     Active Substance: SERTRALINE HYDROCHLORIDE
     Indication: AFFECTIVE DISORDER
     Dosage: 50 MG, DAILY (SIG: ONE ORALLY DAILY FOR MOOD)
     Route: 048

REACTIONS (6)
  - Multimorbidity [Unknown]
  - Off label use [Unknown]
  - Product dose omission [Unknown]
  - Weight decreased [Not Recovered/Not Resolved]
  - Decreased appetite [Unknown]
  - Body height decreased [Unknown]

NARRATIVE: CASE EVENT DATE: 20190101
